FAERS Safety Report 24603740 (Version 1)
Quarter: 2024Q4

REPORT INFORMATION
  Report Type: Spontaneous
  Country: US (occurrence: None)
  Receive Date: 20241110
  Receipt Date: 20241110
  Transmission Date: 20250115
  Serious: Yes (Disabling, Other)
  Sender: Public
  Company Number: None

PATIENT
  Age: 59 Year
  Sex: Female
  Weight: 76.05 kg

DRUGS (1)
  1. KENALOG [Suspect]
     Active Substance: TRIAMCINOLONE ACETONIDE
     Indication: Nonspecific reaction
     Dosage: OTHER QUANTITY : 1 INJECTION(S);?OTHER FREQUENCY : ONCE;?
     Route: 030
     Dates: start: 20231014, end: 20231014

REACTIONS (24)
  - Erythema [None]
  - Flushing [None]
  - Palpitations [None]
  - Hunger [None]
  - Weight increased [None]
  - Depression [None]
  - Anxiety [None]
  - Immune system disorder [None]
  - Infection [None]
  - COVID-19 [None]
  - Sinus disorder [None]
  - Insomnia [None]
  - Asthenia [None]
  - Lethargy [None]
  - Panic attack [None]
  - Visual impairment [None]
  - Alopecia [None]
  - Dry mouth [None]
  - Hypertension [None]
  - Headache [None]
  - Tremor [None]
  - Nausea [None]
  - Fear [None]
  - Product complaint [None]

NARRATIVE: CASE EVENT DATE: 20231014
